FAERS Safety Report 8384286 (Version 5)
Quarter: 2013Q2

REPORT INFORMATION
  Report Type: Spontaneous
  Country: US (occurrence: US)
  Receive Date: 20120202
  Receipt Date: 20130516
  Transmission Date: 20140414
  Serious: Yes (Death, Hospitalization, Other)
  Sender: FDA-Public Use
  Company Number: US-BAYER-2012-010222

PATIENT
  Age: 19 Year
  Sex: Female
  Weight: 69.39 kg

DRUGS (8)
  1. YAZ [Suspect]
  2. YASMIN [Suspect]
  3. BEYAZ [Suspect]
     Indication: CONTRACEPTION
     Dosage: UNK
     Dates: start: 20110818, end: 20111215
  4. OCELLA [Suspect]
  5. ACCUTANE [Suspect]
     Indication: ACNE
     Dosage: UNK
     Dates: start: 201108, end: 201112
  6. SINGULAIR [Concomitant]
     Dosage: 1 DAILY
     Dates: start: 2009
  7. MULTIVITAMIN [Concomitant]
     Dosage: UNK
     Dates: start: 201103
  8. CLARAVIS [Concomitant]
     Dosage: 2 30 MG, CAPSULES EVERY DAY

REACTIONS (22)
  - Pulmonary embolism [Fatal]
  - Dyspnoea [Fatal]
  - Chest pain [Fatal]
  - Oxygen saturation decreased [Fatal]
  - Sinus tachycardia [Fatal]
  - Respiratory distress [Fatal]
  - Haemodynamic instability [None]
  - Hypotension [None]
  - Cardiogenic shock [None]
  - Hypoperfusion [None]
  - Hypoxia [None]
  - Cold sweat [None]
  - Right ventricular dysfunction [None]
  - Vasodilatation [None]
  - Hypoxia [None]
  - Injury [Fatal]
  - General physical health deterioration [Fatal]
  - Pain [Fatal]
  - Emotional distress [None]
  - Tachypnoea [Fatal]
  - QRS axis abnormal [None]
  - Bundle branch block right [None]
